FAERS Safety Report 5099756-7 (Version None)
Quarter: 2006Q3

REPORT INFORMATION
  Report Type: 
  Country: None (occurrence: None)
  Receive Date: 20060906
  Receipt Date: 20060824
  Transmission Date: 20061208
  Serious: Yes (Other)
  Sender: FDA-Public Use
  Company Number: 2006103752

PATIENT
  Sex: Female

DRUGS (2)
  1. DELTACORTRIL [Suspect]
     Indication: DRUG USE FOR UNKNOWN INDICATION
     Dosage: ORAL
     Route: 048
     Dates: start: 19800101
  2. AMITRIPTYLINE HCL [Concomitant]

REACTIONS (11)
  - ASTHENIA [None]
  - DECREASED ACTIVITY [None]
  - DEPRESSION [None]
  - DRUG EFFECT DECREASED [None]
  - FEELING ABNORMAL [None]
  - FEELING OF DESPAIR [None]
  - FOOT FRACTURE [None]
  - MENTAL IMPAIRMENT [None]
  - PARAESTHESIA [None]
  - PHARMACEUTICAL PRODUCT COMPLAINT [None]
  - THERAPEUTIC RESPONSE DELAYED [None]
